FAERS Safety Report 9816406 (Version 1)
Quarter: 2014Q1

REPORT INFORMATION
  Report Type: Spontaneous
  Country: US (occurrence: US)
  Receive Date: 20140114
  Receipt Date: 20140114
  Transmission Date: 20141002
  Serious: No
  Sender: FDA-Public Use
  Company Number: US-TARO-2013P1011725

PATIENT
  Age: 51 Year
  Sex: Female
  Weight: 105.24 kg

DRUGS (7)
  1. DESOXIMETASONE CREAM USP 0.05% [Suspect]
     Route: 061
     Dates: start: 20130701, end: 20130708
  2. BACTROBAN [Suspect]
     Route: 061
  3. XARELTO [Concomitant]
  4. ZEGERID [Concomitant]
  5. BENICAR [Concomitant]
  6. HYDROCODONE [Concomitant]
  7. MOTRIN [Concomitant]

REACTIONS (1)
  - Drug ineffective [Not Recovered/Not Resolved]
